FAERS Safety Report 15010404 (Version 30)
Quarter: 2020Q4

REPORT INFORMATION
  Report Type: Report from Study
  Country: CA (occurrence: CA)
  Receive Date: 20180614
  Receipt Date: 20201211
  Transmission Date: 20210113
  Serious: Yes (Other)
  Sender: FDA-Public Use
  Company Number: PHHY2017CA135376

PATIENT
  Age: 69 Year
  Sex: Female

DRUGS (42)
  1. XOLAIR [Suspect]
     Active Substance: OMALIZUMAB
     Dosage: UNK
     Route: 058
     Dates: start: 20170911
  2. XOLAIR [Suspect]
     Active Substance: OMALIZUMAB
     Dosage: 300 MG, EVERY 4 WEEKS
     Route: 058
     Dates: start: 20180705
  3. XOLAIR [Suspect]
     Active Substance: OMALIZUMAB
     Dosage: 300 MG, RECEIVED EARLY
     Route: 058
     Dates: start: 20190814
  4. XOLAIR [Suspect]
     Active Substance: OMALIZUMAB
     Dosage: 300 MG, RECEIVED HER INJECTION EARLIER
     Route: 058
     Dates: start: 20200219
  5. XOLAIR [Suspect]
     Active Substance: OMALIZUMAB
     Dosage: 300 MG EVERY 4 WEEKS
     Route: 058
     Dates: start: 20200311
  6. XOLAIR [Suspect]
     Active Substance: OMALIZUMAB
     Dosage: 300 MG EVERY 3 WEEKS
     Route: 058
  7. XOLAIR [Suspect]
     Active Substance: OMALIZUMAB
     Indication: CHRONIC SPONTANEOUS URTICARIA
     Dosage: 300 MG, EVERY 4 WEEKS
     Route: 058
     Dates: start: 20150629
  8. XOLAIR [Suspect]
     Active Substance: OMALIZUMAB
     Dosage: 300 MG, EVERY 4 WEEKS (RECEIVED EARLIER)
     Route: 058
     Dates: start: 20180723
  9. XOLAIR [Suspect]
     Active Substance: OMALIZUMAB
     Dosage: 300 MG, RECEIVED EARLY
     Route: 058
     Dates: start: 20190708
  10. XOLAIR [Suspect]
     Active Substance: OMALIZUMAB
     Dosage: 300 MG, RECEIVED HER INJECTION EARLIER
     Route: 058
     Dates: start: 20191127
  11. MONTELUKAST SODIUM. [Suspect]
     Active Substance: MONTELUKAST SODIUM
     Indication: CHRONIC SPONTANEOUS URTICARIA
     Dosage: 10 MG, QD
     Route: 048
  12. REACTINE [Concomitant]
     Indication: CHRONIC SPONTANEOUS URTICARIA
     Dosage: 20 MG, QD
     Route: 048
     Dates: start: 201802
  13. CETAPHIL [Concomitant]
     Indication: CHRONIC SPONTANEOUS URTICARIA
     Dosage: UNK
     Route: 061
     Dates: start: 201802
  14. SYNTHROID [Concomitant]
     Active Substance: LEVOTHYROXINE SODIUM
     Indication: CHRONIC SPONTANEOUS URTICARIA
     Dosage: 0.125 UG, UNK
     Route: 048
  15. XOLAIR [Suspect]
     Active Substance: OMALIZUMAB
     Dosage: 150 MG, (INSTEAD OF 300 MG)
     Route: 058
     Dates: start: 20180110
  16. XOLAIR [Suspect]
     Active Substance: OMALIZUMAB
     Dosage: 300 MG, EVERY 4 WEEKS
     Route: 058
     Dates: start: 20190527
  17. XOLAIR [Suspect]
     Active Substance: OMALIZUMAB
     Dosage: 300 MG, RECEIVED 1 WEEK TOO EARLY
     Route: 058
     Dates: start: 20191016
  18. XOLAIR [Suspect]
     Active Substance: OMALIZUMAB
     Dosage: 300 MG, RECEIVED 1 WEEK TOO EARLY
     Route: 058
     Dates: start: 20191106
  19. ZOPICLONE [Suspect]
     Active Substance: ZOPICLONE
     Indication: CHRONIC SPONTANEOUS URTICARIA
     Dosage: 7.5 MG, QD
     Route: 048
  20. BENADRYL [Concomitant]
     Active Substance: DIPHENHYDRAMINE HYDROCHLORIDE
     Indication: CHRONIC SPONTANEOUS URTICARIA
     Dosage: 25 MG, UNK
     Route: 048
  21. CETRIZINE [Concomitant]
     Active Substance: CETIRIZINE HYDROCHLORIDE
     Indication: PRODUCT USED FOR UNKNOWN INDICATION
     Dosage: 20 MG, QD
     Route: 048
  22. XOLAIR [Suspect]
     Active Substance: OMALIZUMAB
     Dosage: 300 MG, EVERY 4 WEEKS
     Route: 058
     Dates: start: 20190506
  23. XOLAIR [Suspect]
     Active Substance: OMALIZUMAB
     Dosage: 300 MG, RECEIVED EARLY
     Route: 058
     Dates: start: 20190725
  24. ZANTAC [Concomitant]
     Active Substance: RANITIDINE HYDROCHLORIDE
     Indication: CHRONIC SPONTANEOUS URTICARIA
     Dosage: UNK
     Route: 048
  25. MENTHOL. [Concomitant]
     Active Substance: MENTHOL
     Indication: CHRONIC SPONTANEOUS URTICARIA
     Dosage: UNK
     Route: 061
     Dates: start: 201802
  26. XOLAIR [Suspect]
     Active Substance: OMALIZUMAB
     Dosage: 150 MG (INSTEAD OF 300 MG), UNK
     Route: 058
     Dates: start: 20171206
  27. XOLAIR [Suspect]
     Active Substance: OMALIZUMAB
     Dosage: 300 MG, EVERY 4 WEEKS
     Route: 058
     Dates: start: 20190926
  28. XOLAIR [Suspect]
     Active Substance: OMALIZUMAB
     Dosage: 300 MG, RECEIVED HER INJECTION EARLIER
     Route: 058
     Dates: start: 20200401
  29. XOLAIR [Suspect]
     Active Substance: OMALIZUMAB
     Dosage: 300 MG, Q3W
     Route: 058
     Dates: start: 20160406
  30. XOLAIR [Suspect]
     Active Substance: OMALIZUMAB
     Dosage: 300 MG, EVERY 4 WEEKS
     Route: 058
     Dates: start: 20180510
  31. XOLAIR [Suspect]
     Active Substance: OMALIZUMAB
     Dosage: 300 MG, EVERY 4 WEEKS
     Route: 058
     Dates: start: 20181210
  32. XOLAIR [Suspect]
     Active Substance: OMALIZUMAB
     Dosage: 300 MG, RECEIVED EARLY
     Route: 058
     Dates: start: 20190905
  33. CANDESARTAN CILEXETIL. [Suspect]
     Active Substance: CANDESARTAN CILEXETIL
     Indication: PRODUCT USED FOR UNKNOWN INDICATION
     Dosage: 16 MG, QD
     Route: 048
  34. TOPICORT [Concomitant]
     Active Substance: DESOXIMETASONE
     Indication: CHRONIC SPONTANEOUS URTICARIA
     Dosage: UNK
     Route: 061
     Dates: start: 201802
  35. XOLAIR [Suspect]
     Active Substance: OMALIZUMAB
     Dosage: 300 MG, RECEIVED HER INJECTION EARLIER
     Route: 058
     Dates: start: 20200108
  36. XOLAIR [Suspect]
     Active Substance: OMALIZUMAB
     Dosage: 150 MG (INSTEAD OF 300 MG), UNK
     Route: 058
     Dates: start: 20171011
  37. XOLAIR [Suspect]
     Active Substance: OMALIZUMAB
     Dosage: 300 MG, EVERY 4 WEEKS
     Route: 058
     Dates: start: 20190617
  38. XOLAIR [Suspect]
     Active Substance: OMALIZUMAB
     Dosage: 300 MG, RECEIVED HER INJECTION EARLIER
     Route: 058
     Dates: start: 20200129
  39. XOLAIR [Suspect]
     Active Substance: OMALIZUMAB
     Dosage: 300 MG EVERY 3 WEEKS
     Route: 058
  40. ATARAX [Concomitant]
     Active Substance: HYDROXYZINE HYDROCHLORIDE
     Indication: CHRONIC SPONTANEOUS URTICARIA
     Dosage: 25 MG, QD
     Route: 048
     Dates: start: 201802
  41. CLARITIN [Concomitant]
     Active Substance: LORATADINE
     Indication: CHRONIC SPONTANEOUS URTICARIA
     Dosage: 10 MG, BID
     Route: 048
  42. SERTRALINA TEVA [Concomitant]
     Active Substance: SERTRALINE HYDROCHLORIDE
     Indication: CHRONIC SPONTANEOUS URTICARIA
     Dosage: 25 MG, TID
     Route: 048

REACTIONS (15)
  - Pain in extremity [Unknown]
  - Inappropriate schedule of product administration [Unknown]
  - Blood pressure systolic increased [Not Recovered/Not Resolved]
  - Nausea [Unknown]
  - Hypertension [Unknown]
  - Cough [Unknown]
  - Pulmonary fibrosis [Unknown]
  - Limb mass [Unknown]
  - Headache [Unknown]
  - Tremor [Unknown]
  - Dizziness [Not Recovered/Not Resolved]
  - Labyrinthitis [Unknown]
  - Incorrect dose administered [Unknown]
  - Bronchitis [Unknown]
  - Sinusitis [Unknown]

NARRATIVE: CASE EVENT DATE: 20170911
